FAERS Safety Report 15961985 (Version 3)
Quarter: 2019Q2

REPORT INFORMATION
  Report Type: Spontaneous
  Country: US (occurrence: US)
  Receive Date: 20190214
  Receipt Date: 20190409
  Transmission Date: 20190711
  Serious: Yes (Death, Life-Threatening, Hospitalization)
  Sender: FDA-Public Use
  Company Number: US-AMREGENT-20190227

PATIENT
  Age: 53 Year
  Sex: Male
  Weight: 127 kg

DRUGS (11)
  1. HYDRALAZINE [Concomitant]
     Active Substance: HYDRALAZINE HYDROCHLORIDE
     Dosage: 3 DF, (1 DF, 3 IN 1 D)
     Route: 048
  2. BRILINTA [Concomitant]
     Active Substance: TICAGRELOR
     Dosage: 2 DF (1 DF, 2 IN 1 D)
     Route: 048
  3. FUROSEMIDE. [Concomitant]
     Active Substance: FUROSEMIDE
     Dosage: 3 DF (1 DF, 3 IN 1 D)
     Route: 048
  4. LOSARTAN. [Concomitant]
     Active Substance: LOSARTAN
     Dosage: TAKE AT BEDTIME(1 DF,1 IN 1 D)
     Route: 048
  5. HEPARIN SODIUM. [Concomitant]
     Active Substance: HEPARIN SODIUM
     Dosage: 1000 UNITS/ML (4000 IU)
     Route: 040
     Dates: start: 20181204
  6. ACETAMINOPHEN. [Concomitant]
     Active Substance: ACETAMINOPHEN
     Dosage: 3900 MG, 650 MG,AS REQUIRED
     Route: 048
     Dates: start: 20181204
  7. ATORVASTATIN [Concomitant]
     Active Substance: ATORVASTATIN
     Dosage: TAKE AS ENEMA 1 DF, 1 IN 1 D
     Route: 054
  8. VENOFER [Suspect]
     Active Substance: IRON SUCROSE
     Dosage: 14TH DOSE (100 MG)
     Route: 040
     Dates: start: 20190124, end: 20190124
  9. MIRCERA [Suspect]
     Active Substance: METHOXY POLYETHYLENE GLYCOL-EPOETIN BETA
     Dosage: 75 MCG, EVERY 2 WEEKSX365 DAYS
     Route: 040
     Dates: start: 20190124, end: 20190124
  10. CLONIDINE HYDROCHLORIDE. [Concomitant]
     Active Substance: CLONIDINE HYDROCHLORIDE
     Dosage: 2 DF, (1 DF AS REQUIRED)
     Route: 048
     Dates: start: 20181211
  11. RENVELA [Concomitant]
     Active Substance: SEVELAMER CARBONATE
     Dosage: WITH MEALS (1 DF, 4 IN 1 D)
     Route: 048

REACTIONS (4)
  - Malaise [Unknown]
  - Seizure [Unknown]
  - Cardiac arrest [Unknown]
  - Death [Fatal]

NARRATIVE: CASE EVENT DATE: 20190124
